FAERS Safety Report 13747592 (Version 1)
Quarter: 2017Q3

REPORT INFORMATION
  Report Type: Spontaneous
  Country: CN (occurrence: CN)
  Receive Date: 20170712
  Receipt Date: 20170712
  Transmission Date: 20171127
  Serious: Yes (Death)
  Sender: FDA-Public Use
  Company Number: CN-BAUSCH-BL-2017-021034

PATIENT
  Age: 24 Year
  Sex: Male

DRUGS (16)
  1. DEXAMETHASONE. [Concomitant]
     Active Substance: DEXAMETHASONE
     Indication: CHEMOTHERAPY
     Route: 037
  2. RETINOIC ACID [Suspect]
     Active Substance: TRETINOIN
     Route: 048
     Dates: start: 201105
  3. ARSENIC TRIIODIDE [Suspect]
     Active Substance: ARSENIC TRIIODIDE
     Dosage: FROM DAY 1 TO DAY 9
     Route: 042
     Dates: start: 201105
  4. ARSENIC TRIIODIDE [Suspect]
     Active Substance: ARSENIC TRIIODIDE
     Indication: ACUTE MONOCYTIC LEUKAEMIA
     Dosage: FROM DAY 1 TO DAY 20
     Route: 042
     Dates: start: 20100915
  5. ARSENIC TRIIODIDE [Suspect]
     Active Substance: ARSENIC TRIIODIDE
     Dosage: FROM DAY 1 TO DAY 14
     Route: 042
     Dates: start: 20101030
  6. ARSENIC TRIIODIDE [Suspect]
     Active Substance: ARSENIC TRIIODIDE
     Dosage: FROM DAY 1 TO DAY 14
     Route: 042
     Dates: start: 20101230
  7. ARSENIC TRIIODIDE [Suspect]
     Active Substance: ARSENIC TRIIODIDE
     Dosage: FROM DAY 1 TO DAY 12
     Route: 042
     Dates: start: 20110224
  8. CYTARABINE. [Concomitant]
     Active Substance: CYTARABINE
     Indication: CHEMOTHERAPY
     Route: 037
  9. CYTARABINE. [Concomitant]
     Active Substance: CYTARABINE
     Dosage: HIGH-DOSAGE FROM DAY 1 TO DAY 3
     Route: 037
     Dates: start: 20110114
  10. METHOTREXATE. [Concomitant]
     Active Substance: METHOTREXATE
     Indication: CHEMOTHERAPY
     Route: 037
  11. RETINOIC ACID [Suspect]
     Active Substance: TRETINOIN
     Indication: ACUTE MONOCYTIC LEUKAEMIA
     Route: 048
     Dates: start: 20100915
  12. RETINOIC ACID [Suspect]
     Active Substance: TRETINOIN
     Route: 048
     Dates: start: 20110329
  13. ARSENIC TRIIODIDE [Suspect]
     Active Substance: ARSENIC TRIIODIDE
     Dosage: FROM DAY 1 TO DAY 15
     Route: 042
     Dates: start: 20110329
  14. CYTARABINE. [Concomitant]
     Active Substance: CYTARABINE
     Dosage: ALTERNATE-DAY
     Route: 037
     Dates: start: 20110331
  15. DEXAMETHASONE. [Concomitant]
     Active Substance: DEXAMETHASONE
     Dosage: ALTERNATE-DAY
     Route: 037
     Dates: start: 20110331
  16. METHOTREXATE. [Concomitant]
     Active Substance: METHOTREXATE
     Route: 037
     Dates: start: 20110331

REACTIONS (2)
  - Drug ineffective [Fatal]
  - Acute monocytic leukaemia [Fatal]
